FAERS Safety Report 9290166 (Version 1)
Quarter: 2013Q2

REPORT INFORMATION
  Report Type: Spontaneous
  Country: JP (occurrence: JP)
  Receive Date: 20130515
  Receipt Date: 20130515
  Transmission Date: 20140414
  Serious: Yes (Hospitalization)
  Sender: FDA-Public Use
  Company Number: JP-ELI_LILLY_AND_COMPANY-JP201305002780

PATIENT
  Sex: Male

DRUGS (1)
  1. CIALIS [Suspect]
     Dosage: UNK
     Route: 048
     Dates: start: 20130329

REACTIONS (3)
  - Loss of consciousness [Unknown]
  - Convulsion [Unknown]
  - Suspected counterfeit product [Unknown]
